FAERS Safety Report 13922082 (Version 1)
Quarter: 2017Q3

REPORT INFORMATION
  Report Type: Spontaneous
  Country: US (occurrence: US)
  Receive Date: 20170830
  Receipt Date: 20170830
  Transmission Date: 20171127
  Serious: No
  Sender: FDA-Public Use
  Company Number: US-TARO-2016TAR00921

PATIENT
  Age: 68 Year
  Sex: Male
  Weight: 149.66 kg

DRUGS (9)
  1. WARFARIN SODIUM TABLETS USP 6MG [Suspect]
     Active Substance: WARFARIN SODIUM
     Dosage: 6 MG, 1X/DAY
     Route: 048
     Dates: start: 201101, end: 201609
  2. WARFARIN SODIUM TABLETS USP 6MG [Suspect]
     Active Substance: WARFARIN SODIUM
     Dosage: 9 MG ONCE A WEEK; 6 MG 6 DAYS A WEEK
     Route: 048
     Dates: start: 201609, end: 201610
  3. WARFARIN SODIUM TABLETS USP 6MG [Suspect]
     Active Substance: WARFARIN SODIUM
     Dosage: 9 MG EVERY OTHER DAY; 6 MG EVERY OTHER DAY
     Route: 048
     Dates: start: 20161101
  4. SUCRALFATE. [Concomitant]
     Active Substance: SUCRALFATE
     Dosage: 1 G, AS NEEDED
  5. WARFARIN SODIUM TABLETS USP 6MG [Suspect]
     Active Substance: WARFARIN SODIUM
     Dosage: 9MG TWICE PER WEEK; 6 MG 5 DAYS PER WEEK
     Route: 048
     Dates: start: 201610, end: 20161031
  6. WARFARIN SODIUM TABLETS USP 6MG [Suspect]
     Active Substance: WARFARIN SODIUM
     Indication: THROMBOSIS
     Dosage: UNK
     Route: 048
     Dates: start: 201012, end: 201101
  7. METFORMIN [Concomitant]
     Active Substance: METFORMIN HYDROCHLORIDE
     Dosage: 500 MG, 2X/DAY
  8. ATORVASTATIN [Concomitant]
     Active Substance: ATORVASTATIN
     Dosage: 10 MG (TITER), 1X/DAY
  9. RAMIPRIL. [Concomitant]
     Active Substance: RAMIPRIL
     Indication: HYPERTENSION
     Dosage: 5 MG, 1X/DAY

REACTIONS (2)
  - International normalised ratio decreased [Not Recovered/Not Resolved]
  - Drug ineffective [Not Recovered/Not Resolved]

NARRATIVE: CASE EVENT DATE: 201609
